FAERS Safety Report 7738918-4 (Version None)
Quarter: 2011Q3

REPORT INFORMATION
  Report Type: 
  Country: None (occurrence: None)
  Receive Date: 20110909
  Receipt Date: 20110901
  Transmission Date: 20111222
  Serious: No
  Sender: FDA-Public Use
  Company Number: US-BIOGENIDEC-2010BI031219

PATIENT
  Age: 30 Year
  Sex: Female

DRUGS (3)
  1. TYSABRI [Suspect]
     Route: 042
     Dates: start: 20100519, end: 20100916
  2. TYSABRI [Suspect]
     Indication: MULTIPLE SCLEROSIS
     Route: 042
     Dates: start: 20090521, end: 20091223
  3. TYSABRI [Suspect]
     Route: 042
     Dates: start: 20110823

REACTIONS (4)
  - MULTIPLE SCLEROSIS [None]
  - COGNITIVE DISORDER [None]
  - LETHARGY [None]
  - FATIGUE [None]
